FAERS Safety Report 7142639-9 (Version None)
Quarter: 2010Q4

REPORT INFORMATION
  Report Type: 
  Country: None (occurrence: None)
  Receive Date: 20101207
  Receipt Date: 20101130
  Transmission Date: 20110411
  Serious: Yes (Hospitalization, Other)
  Sender: FDA-Public Use
  Company Number: US-TEVA-257932USA

PATIENT
  Sex: Female

DRUGS (1)
  1. PROPOXYPHENE NAPSYLATE AND ACETAMINOPHEN [Suspect]
     Indication: JOINT INJURY
     Dates: end: 20100920

REACTIONS (2)
  - HEART RATE IRREGULAR [None]
  - VENTRICULAR TACHYCARDIA [None]
